FAERS Safety Report 11596718 (Version 1)
Quarter: 2015Q4

REPORT INFORMATION
  Report Type: Spontaneous
  Country: US (occurrence: None)
  Receive Date: 20151005
  Receipt Date: 20151005
  Transmission Date: 20160304
  Serious: No
  Sender: FDA-Public Use
  Company Number: None

PATIENT
  Age: 46 Year
  Sex: Male
  Weight: 78.02 kg

DRUGS (3)
  1. BUSPIRONE [Concomitant]
     Active Substance: BUSPIRONE HYDROCHLORIDE
  2. BUPROPION SR 150MG SANDOZ [Suspect]
     Active Substance: BUPROPION
     Indication: GENERALISED ANXIETY DISORDER
     Route: 048
     Dates: start: 20150810, end: 20151002
  3. BUPROPION SR 150MG SUN PHARMA [Suspect]
     Active Substance: BUPROPION
     Indication: GENERALISED ANXIETY DISORDER
     Dosage: 1
     Route: 048
     Dates: start: 20151003, end: 20151004

REACTIONS (5)
  - Mood swings [None]
  - Abnormal dreams [None]
  - Anger [None]
  - Headache [None]
  - Depression [None]

NARRATIVE: CASE EVENT DATE: 20151004
